FAERS Safety Report 15353331 (Version 2)
Quarter: 2018Q3

REPORT INFORMATION
  Report Type: Spontaneous
  Country: JP (occurrence: JP)
  Receive Date: 20180905
  Receipt Date: 20180912
  Transmission Date: 20181010
  Serious: Yes (Other)
  Sender: FDA-Public Use
  Company Number: JP-ALLERGAN-1842918US

PATIENT
  Age: 83 Year
  Sex: Male

DRUGS (8)
  1. LINACLOTIDE ? BP [Suspect]
     Active Substance: LINACLOTIDE
     Dosage: 0.5 MG, QD
     Route: 048
  2. ANTIHYPERTENSIVES [Concomitant]
     Active Substance: UNSPECIFIED INGREDIENT
     Indication: HYPERTENSION
     Route: 065
  3. LINACLOTIDE ? BP [Suspect]
     Active Substance: LINACLOTIDE
     Indication: IRRITABLE BOWEL SYNDROME
     Dosage: 0.25 MG, QD
     Route: 048
  4. GASCON [Concomitant]
     Active Substance: DIMETHICONE
     Indication: PRODUCT USED FOR UNKNOWN INDICATION
     Dosage: UNK
     Route: 048
  5. ANTIDIABETIC [Concomitant]
     Active Substance: UNSPECIFIED INGREDIENT
     Indication: DIABETES MELLITUS
     Dosage: UNK
     Route: 065
  6. LINACLOTIDE ? BP [Suspect]
     Active Substance: LINACLOTIDE
     Dosage: .25 MG, UNK
     Route: 048
  7. LINACLOTIDE ? BP [Suspect]
     Active Substance: LINACLOTIDE
     Dosage: 0.5 MG
     Route: 048
     Dates: start: 20171108
  8. SLEEPING PILL [Concomitant]
     Indication: INSOMNIA
     Dosage: UNK
     Route: 065

REACTIONS (19)
  - Pain in extremity [Unknown]
  - Decreased appetite [Unknown]
  - Incorrect dose administered [Unknown]
  - Weight decreased [Not Recovered/Not Resolved]
  - Neurogenic bowel [Not Recovered/Not Resolved]
  - Tension headache [Not Recovered/Not Resolved]
  - Tooth disorder [Unknown]
  - Benign prostatic hyperplasia [Unknown]
  - Flatulence [Recovering/Resolving]
  - Blood pressure decreased [Not Recovered/Not Resolved]
  - Dysphonia [Not Recovered/Not Resolved]
  - Constipation [Not Recovered/Not Resolved]
  - Aphonia [Not Recovered/Not Resolved]
  - Pain in extremity [Not Recovered/Not Resolved]
  - Drug dose omission [Unknown]
  - Back pain [Unknown]
  - Diabetic foot [Not Recovered/Not Resolved]
  - Gastrointestinal motility disorder [Unknown]
  - Diarrhoea [Not Recovered/Not Resolved]

NARRATIVE: CASE EVENT DATE: 201803
